FAERS Safety Report 10895810 (Version 1)
Quarter: 2015Q1

REPORT INFORMATION
  Report Type: Spontaneous
  Country: CY (occurrence: CY)
  Receive Date: 20150307
  Receipt Date: 20150307
  Transmission Date: 20150721
  Serious: Yes (Hospitalization)
  Sender: FDA-Public Use
  Company Number: CY-BIOGENIDEC-2015BI025144

PATIENT
  Age: 45 Year
  Sex: Male

DRUGS (1)
  1. FAMPYRA [Suspect]
     Active Substance: DALFAMPRIDINE
     Indication: GAIT DISTURBANCE

REACTIONS (4)
  - Tachyarrhythmia [Unknown]
  - Status epilepticus [Unknown]
  - Pyrexia [Unknown]
  - Food interaction [Unknown]

NARRATIVE: CASE EVENT DATE: 20150203
